FAERS Safety Report 8269214-7 (Version None)
Quarter: 2012Q2

REPORT INFORMATION
  Report Type: 
  Country: None (occurrence: None)
  Receive Date: 20120409
  Receipt Date: 20120330
  Transmission Date: 20120825
  Serious: Yes (Hospitalization, Other)
  Sender: FDA-Public Use
  Company Number: US-BAYER-2012-019485

PATIENT
  Age: 23 Year
  Sex: Female
  Weight: 61.224 kg

DRUGS (2)
  1. YAZ [Suspect]
     Indication: CONTRACEPTION
     Dosage: UNK
     Dates: start: 20070901, end: 20091201
  2. NUVARING [Concomitant]
     Dosage: UNK
     Dates: start: 20100501

REACTIONS (12)
  - GALLBLADDER DISORDER [None]
  - ABDOMINAL PAIN [None]
  - PROCEDURAL PAIN [None]
  - PAIN [None]
  - CHOLECYSTITIS CHRONIC [None]
  - DIARRHOEA [None]
  - DYSPEPSIA [None]
  - BILIARY DYSKINESIA [None]
  - EMOTIONAL DISTRESS [None]
  - GOUT [None]
  - NAUSEA [None]
  - ABDOMINAL PAIN UPPER [None]
